FAERS Safety Report 6284228-4 (Version None)
Quarter: 2009Q3

REPORT INFORMATION
  Report Type: 
  Country: None (occurrence: None)
  Receive Date: 20090727
  Receipt Date: 20090716
  Transmission Date: 20100115
  Serious: Yes (Death)
  Sender: FDA-Public Use
  Company Number: US-JNJFOC-20090705691

PATIENT
  Sex: Male

DRUGS (1)
  1. REMICADE [Suspect]
     Indication: SWEAT GLAND INFECTION
     Route: 042

REACTIONS (1)
  - SQUAMOUS CELL CARCINOMA [None]
